FAERS Safety Report 23884989 (Version 1)
Quarter: 2024Q2

REPORT INFORMATION
  Report Type: Spontaneous
  Country: US (occurrence: US)
  Receive Date: 20240522
  Receipt Date: 20240522
  Transmission Date: 20240716
  Serious: No
  Sender: FDA-Public Use
  Company Number: US-SCIEGENP-2024SCSPO00246

PATIENT
  Sex: Female

DRUGS (1)
  1. BUPROPION HYDROCHLORIDE [Suspect]
     Active Substance: BUPROPION HYDROCHLORIDE
     Indication: Product used for unknown indication
     Route: 065

REACTIONS (8)
  - Nervousness [Unknown]
  - Crying [Unknown]
  - Pain [Unknown]
  - Feeling abnormal [Unknown]
  - Depressed mood [Unknown]
  - Arthralgia [Unknown]
  - Insomnia [Unknown]
  - Drug ineffective [Unknown]
